FAERS Safety Report 13985053 (Version 2)
Quarter: 2017Q3

REPORT INFORMATION
  Report Type: Spontaneous
  Country: IN (occurrence: IN)
  Receive Date: 20170919
  Receipt Date: 20170919
  Transmission Date: 20171128
  Serious: Yes (Other)
  Sender: FDA-Public Use
  Company Number: IN-CIPLA LTD.-2017IN16859

PATIENT

DRUGS (4)
  1. CLONIDINE. [Suspect]
     Active Substance: CLONIDINE
     Indication: HYPERTENSION
     Dosage: 150 MCG, TID
     Route: 065
  2. LABETALOL [Suspect]
     Active Substance: LABETALOL\LABETALOL HYDROCHLORIDE
     Indication: HYPERTENSION
     Dosage: 100 MG, BID
     Route: 048
  3. AMLODIPINE [Suspect]
     Active Substance: AMLODIPINE BESYLATE
     Indication: HYPERTENSION
     Dosage: 10 MG, BID
     Route: 065
  4. LABETALOL [Suspect]
     Active Substance: LABETALOL\LABETALOL HYDROCHLORIDE
     Dosage: 200 MG, QID
     Route: 048

REACTIONS (5)
  - Exposure during pregnancy [Unknown]
  - Premature delivery [Unknown]
  - Pre-eclampsia [Recovered/Resolved]
  - Drug ineffective [Unknown]
  - VIth nerve paralysis [Recovered/Resolved]
